FAERS Safety Report 15027065 (Version 4)
Quarter: 2018Q3

REPORT INFORMATION
  Report Type: Spontaneous
  Country: JP (occurrence: JP)
  Receive Date: 20180619
  Receipt Date: 20180912
  Transmission Date: 20181010
  Serious: Yes (Hospitalization, Other)
  Sender: FDA-Public Use
  Company Number: JP-ASTELLAS-2016JP004781

PATIENT
  Age: 8 Year
  Sex: Female
  Weight: 21 kg

DRUGS (57)
  1. GRACEPTOR [Suspect]
     Active Substance: TACROLIMUS
     Dosage: MAXIMUM 1.7 MG, ONCE DAILY
     Route: 048
     Dates: start: 2014, end: 20141222
  2. FLUDARABINE PHOSPHATE. [Suspect]
     Active Substance: FLUDARABINE PHOSPHATE
     Indication: ALLOGENIC BONE MARROW TRANSPLANTATION THERAPY
     Route: 065
     Dates: start: 20141016
  3. PREDNISOLONE. [Concomitant]
     Active Substance: PREDNISOLONE
     Indication: CHRONIC GRAFT VERSUS HOST DISEASE
     Dosage: 0.5 MG/KG, TWICE DAILY
     Route: 065
     Dates: start: 20150501, end: 20150522
  4. METRONIDAZOLE. [Concomitant]
     Active Substance: METRONIDAZOLE
     Indication: CLOSTRIDIAL INFECTION
     Dosage: UNK UNK, UNKNOWN FREQ.
     Route: 048
     Dates: start: 20141210, end: 2014
  5. METRONIDAZOLE. [Concomitant]
     Active Substance: METRONIDAZOLE
     Indication: CLOSTRIDIAL INFECTION
     Dosage: UNK UNK, UNKNOWN FREQ.
     Route: 041
     Dates: start: 2014, end: 20141219
  6. PROGRAF [Suspect]
     Active Substance: TACROLIMUS\TACROLIMUS ANHYDROUS
     Dosage: 0.3?0.5 MG, CONTINUOUS
     Route: 041
     Dates: start: 20141022, end: 20141120
  7. GRACEPTOR [Suspect]
     Active Substance: TACROLIMUS
     Route: 048
     Dates: start: 20150113, end: 20150119
  8. MELPHALAN. [Suspect]
     Active Substance: MELPHALAN
     Indication: ALLOGENIC BONE MARROW TRANSPLANTATION THERAPY
     Route: 065
     Dates: start: 20141016
  9. VALIXA [Suspect]
     Active Substance: VALGANCICLOVIR
     Route: 048
     Dates: start: 20150108, end: 20150130
  10. METHOTREXATE. [Concomitant]
     Active Substance: METHOTREXATE
     Indication: GRAFT VERSUS HOST DISEASE
     Dosage: UNK UNK, UNKNOWN FREQ.
     Route: 065
     Dates: start: 20141022
  11. GANCICLOVIR. [Concomitant]
     Active Substance: GANCICLOVIR
     Indication: CYTOMEGALOVIRUS VIRAEMIA
     Dosage: UNK UNK, UNKNOWN FREQ.
     Route: 065
     Dates: start: 20141211, end: 20150201
  12. GANCICLOVIR. [Concomitant]
     Active Substance: GANCICLOVIR
     Dosage: UNK UNK, UNKNOWN FREQ.
     Route: 065
     Dates: start: 20150510
  13. PREDNISOLONE. [Concomitant]
     Active Substance: PREDNISOLONE
     Route: 065
     Dates: start: 20150603, end: 20150619
  14. PREDNISOLONE. [Concomitant]
     Active Substance: PREDNISOLONE
     Route: 065
  15. PREDNISOLONE. [Concomitant]
     Active Substance: PREDNISOLONE
     Dosage: UNK UNK, UNKNOWN FREQ.
     Route: 065
  16. CEFOTIAM [Concomitant]
     Active Substance: CEFOTIAM
     Indication: PRODUCT USED FOR UNKNOWN INDICATION
     Dosage: UNK UNK, UNKNOWN FREQ.
     Route: 065
     Dates: start: 20140926
  17. VANCOMYCIN [Concomitant]
     Active Substance: VANCOMYCIN
     Indication: CLOSTRIDIUM DIFFICILE INFECTION
     Dosage: UNK UNK, UNKNOWN FREQ.
     Route: 065
     Dates: start: 20141103, end: 2014
  18. GRACEPTOR [Suspect]
     Active Substance: TACROLIMUS
     Route: 048
     Dates: start: 20150127, end: 20150202
  19. ANTITHYMOCYTE IMMUNOGLOBULIN (RABBIT) [Suspect]
     Active Substance: LAPINE T-LYMPHOCYTE IMMUNE GLOBULIN
     Indication: ALLOGENIC BONE MARROW TRANSPLANTATION THERAPY
     Route: 065
     Dates: start: 20141016
  20. CEFEPIME [Concomitant]
     Active Substance: CEFEPIME HYDROCHLORIDE
     Dosage: UNK UNK, UNKNOWN FREQ.
     Route: 065
     Dates: start: 20141206, end: 20141209
  21. VANCOMYCIN [Concomitant]
     Active Substance: VANCOMYCIN
     Dosage: UNK UNK, UNKNOWN FREQ.
     Route: 065
     Dates: start: 20150301
  22. PROGRAF [Suspect]
     Active Substance: TACROLIMUS\TACROLIMUS ANHYDROUS
     Indication: PROPHYLAXIS AGAINST GRAFT VERSUS HOST DISEASE
     Dosage: UNK UNK, UNKNOWN FREQ.
     Route: 065
  23. GRACEPTOR [Suspect]
     Active Substance: TACROLIMUS
     Route: 048
     Dates: start: 20150106, end: 20150112
  24. NEORAL [Suspect]
     Active Substance: CYCLOSPORINE
     Indication: IMMUNOSUPPRESSION
     Dosage: UNK UNK, UNKNOWN FREQ.
     Route: 065
     Dates: start: 20140411, end: 20141006
  25. PREDNISOLONE. [Concomitant]
     Active Substance: PREDNISOLONE
     Dosage: UNK UNK, UNKNOWN FREQ.
     Route: 065
     Dates: start: 20150523, end: 20150602
  26. TAZOBACTAM [Concomitant]
     Active Substance: TAZOBACTAM
     Indication: PRODUCT USED FOR UNKNOWN INDICATION
     Dosage: UNK UNK, UNKNOWN FREQ.
     Route: 065
     Dates: start: 20141017, end: 20141030
  27. ACICLOVIR [Concomitant]
     Active Substance: ACYCLOVIR
     Dosage: UNK UNK, UNKNOWN FREQ.
     Route: 065
     Dates: start: 20150130
  28. SEPAMIT [Concomitant]
     Active Substance: NIFEDIPINE
     Indication: PRODUCT USED FOR UNKNOWN INDICATION
     Dosage: UNK UNK, AS NEEDED
     Route: 065
     Dates: start: 20150312
  29. AMLODIPINE [Concomitant]
     Active Substance: AMLODIPINE BESYLATE
     Dosage: UNK UNK, UNKNOWN FREQ.
     Route: 048
     Dates: start: 20150511
  30. GRACEPTOR [Suspect]
     Active Substance: TACROLIMUS
     Dosage: 0.8 MG, ONCE DAILY
     Route: 048
     Dates: start: 20150218, end: 2015
  31. FOSCAVIR [Suspect]
     Active Substance: FOSCARNET SODIUM
     Indication: CYTOMEGALOVIRUS VIRAEMIA
     Route: 065
     Dates: start: 20141201, end: 20141210
  32. VALIXA [Suspect]
     Active Substance: VALGANCICLOVIR
     Indication: CYTOMEGALOVIRUS VIRAEMIA
     Route: 048
     Dates: start: 20141226, end: 20150107
  33. VALIXA [Suspect]
     Active Substance: VALGANCICLOVIR
     Route: 048
     Dates: start: 20150226, end: 20150403
  34. MEROPENEM. [Concomitant]
     Active Substance: MEROPENEM
     Indication: PYREXIA
     Dosage: UNK UNK, UNKNOWN FREQ.
     Route: 065
     Dates: start: 20141210, end: 20141217
  35. METRONIDAZOLE. [Concomitant]
     Active Substance: METRONIDAZOLE
     Dosage: UNK UNK, UNKNOWN FREQ.
     Route: 041
     Dates: start: 20150219
  36. ACICLOVIR [Concomitant]
     Active Substance: ACYCLOVIR
     Indication: PRODUCT USED FOR UNKNOWN INDICATION
     Dosage: UNK UNK, UNKNOWN FREQ.
     Route: 065
  37. SOLU?CORTEF [Concomitant]
     Active Substance: HYDROCORTISONE SODIUM SUCCINATE
     Indication: PRODUCT USED FOR UNKNOWN INDICATION
     Route: 065
     Dates: start: 20150227
  38. LASIX [Concomitant]
     Active Substance: FUROSEMIDE
     Indication: BLOOD PRESSURE MANAGEMENT
     Dosage: UNK UNK, UNKNOWN FREQ.
     Route: 065
     Dates: start: 20150509
  39. GRACEPTOR [Suspect]
     Active Substance: TACROLIMUS
     Dosage: UNK UNK, UNKNOWN FREQ.
     Route: 048
     Dates: start: 2015, end: 20150315
  40. PREDNISOLONE. [Concomitant]
     Active Substance: PREDNISOLONE
     Dosage: 0.75 MG/KG, ONCE DAILY
     Route: 065
     Dates: start: 20150715, end: 20150728
  41. TAZOBACTAM [Concomitant]
     Active Substance: TAZOBACTAM
     Dosage: UNK UNK, UNKNOWN FREQ.
     Route: 065
     Dates: start: 20150605
  42. VANCOMYCIN [Concomitant]
     Active Substance: VANCOMYCIN
     Dosage: UNK UNK, UNKNOWN FREQ.
     Route: 065
     Dates: start: 20141211, end: 20141214
  43. NICARDIPINE HYDROCHLORIDE. [Concomitant]
     Active Substance: NICARDIPINE HYDROCHLORIDE
     Indication: BLOOD PRESSURE MANAGEMENT
     Dosage: UNK UNK, UNKNOWN FREQ.
     Route: 065
     Dates: start: 20150510
  44. GRACEPTOR [Suspect]
     Active Substance: TACROLIMUS
     Route: 048
     Dates: start: 20141128, end: 2014
  45. GRACEPTOR [Suspect]
     Active Substance: TACROLIMUS
     Route: 048
     Dates: start: 20150203, end: 20150209
  46. FENTANYL. [Concomitant]
     Active Substance: FENTANYL
     Indication: STOMATITIS
     Dosage: UNK UNK, UNKNOWN FREQ.
     Route: 065
     Dates: start: 201410
  47. CEFEPIME [Concomitant]
     Active Substance: CEFEPIME HYDROCHLORIDE
     Indication: PYREXIA
     Dosage: UNK UNK, UNKNOWN FREQ.
     Route: 065
     Dates: start: 20141031, end: 2014
  48. AMLODIPINE [Concomitant]
     Active Substance: AMLODIPINE BESYLATE
     Indication: BLOOD PRESSURE MANAGEMENT
     Dosage: UNK UNK, UNKNOWN FREQ.
     Route: 048
     Dates: start: 20150313
  49. GRACEPTOR [Suspect]
     Active Substance: TACROLIMUS
     Indication: PROPHYLAXIS AGAINST GRAFT VERSUS HOST DISEASE
     Dosage: UNK UNK, UNKNOWN FREQ.
     Route: 048
     Dates: start: 20141121, end: 20141127
  50. GRACEPTOR [Suspect]
     Active Substance: TACROLIMUS
     Route: 048
     Dates: start: 20141223, end: 20150105
  51. GRACEPTOR [Suspect]
     Active Substance: TACROLIMUS
     Route: 048
     Dates: start: 20150120, end: 20150126
  52. GRACEPTOR [Suspect]
     Active Substance: TACROLIMUS
     Dosage: 1.0 MG, ONCE DAILY
     Route: 048
     Dates: start: 20150210, end: 20150216
  53. GRACEPTOR [Suspect]
     Active Substance: TACROLIMUS
     Dosage: 0.9 MG, ONCE DAILY
     Route: 048
     Dates: start: 20150217, end: 20150217
  54. PREDNISOLONE. [Concomitant]
     Active Substance: PREDNISOLONE
     Route: 065
     Dates: start: 20150620, end: 20150714
  55. PREDNISOLONE. [Concomitant]
     Active Substance: PREDNISOLONE
     Route: 065
     Dates: start: 20150729
  56. TAZOBACTAM [Concomitant]
     Active Substance: TAZOBACTAM
     Dosage: UNK UNK, UNKNOWN FREQ.
     Route: 065
     Dates: start: 20150218, end: 20150321
  57. NICARDIPINE HYDROCHLORIDE. [Concomitant]
     Active Substance: NICARDIPINE HYDROCHLORIDE
     Dosage: TAPERED AND DISCONTINUED
     Route: 065
     Dates: end: 20150511

REACTIONS (4)
  - Posterior reversible encephalopathy syndrome [Recovering/Resolving]
  - Renal disorder [Recovered/Resolved]
  - Cytomegalovirus viraemia [Recovering/Resolving]
  - Thrombotic microangiopathy [Recovering/Resolving]

NARRATIVE: CASE EVENT DATE: 20140617
